FAERS Safety Report 16583221 (Version 1)
Quarter: 2019Q3

REPORT INFORMATION
  Report Type: Spontaneous
  Country: FR (occurrence: FR)
  Receive Date: 20190717
  Receipt Date: 20190717
  Transmission Date: 20191004
  Serious: Yes (Other)
  Sender: FDA-Public Use
  Company Number: FR-SA-2019SA193354

PATIENT
  Age: 79 Year
  Sex: Male
  Weight: 115 kg

DRUGS (2)
  1. CEFOTAXIME SODIUM [Suspect]
     Active Substance: CEFOTAXIME SODIUM
     Indication: ESCHERICHIA BACTERAEMIA
     Dosage: 6 G, QD
     Route: 042
     Dates: start: 20190607, end: 20190613
  2. FLAGYL [Suspect]
     Active Substance: METRONIDAZOLE\METRONIDAZOLE HYDROCHLORIDE
     Indication: ESCHERICHIA BACTERAEMIA
     Dosage: 1500 MG, QD
     Route: 048
     Dates: start: 20190607, end: 20190613

REACTIONS (2)
  - Hepatocellular injury [Recovered/Resolved]
  - Cholestasis [Recovering/Resolving]

NARRATIVE: CASE EVENT DATE: 20190611
